FAERS Safety Report 18317335 (Version 4)
Quarter: 2024Q2

REPORT INFORMATION
  Report Type: Report from Study
  Country: US (occurrence: US)
  Receive Date: 20200928
  Receipt Date: 20240516
  Transmission Date: 20240716
  Serious: No
  Sender: FDA-Public Use
  Company Number: US-SA-2020SA258823

PATIENT
  Age: 17 Year
  Sex: Male

DRUGS (9)
  1. EFMOROCTOCOG ALFA [Suspect]
     Active Substance: EFMOROCTOCOG ALFA
     Indication: Factor VIII deficiency
     Dosage: UNK
     Route: 042
     Dates: start: 20170220
  2. EFMOROCTOCOG ALFA [Suspect]
     Active Substance: EFMOROCTOCOG ALFA
     Indication: Factor VIII deficiency
     Dosage: UNK
     Route: 042
     Dates: start: 20170220
  3. EFMOROCTOCOG ALFA [Suspect]
     Active Substance: EFMOROCTOCOG ALFA
     Dosage: 6004 U
     Route: 042
  4. EFMOROCTOCOG ALFA [Suspect]
     Active Substance: EFMOROCTOCOG ALFA
     Dosage: 6004 U
     Route: 042
  5. EFMOROCTOCOG ALFA [Suspect]
     Active Substance: EFMOROCTOCOG ALFA
     Dosage: 6004 U, QD
     Route: 042
     Dates: end: 20200830
  6. EFMOROCTOCOG ALFA [Suspect]
     Active Substance: EFMOROCTOCOG ALFA
     Dosage: 6004 U, QD
     Route: 042
     Dates: end: 20200830
  7. EFMOROCTOCOG ALFA [Suspect]
     Active Substance: EFMOROCTOCOG ALFA
     Dosage: 7000 U, PRN (DAILY PRN FOR BREAKTHROUGH BLEEDS UPTO 4 DOSES)
     Route: 042
  8. EFMOROCTOCOG ALFA [Suspect]
     Active Substance: EFMOROCTOCOG ALFA
     Dosage: 7000 U, PRN (DAILY PRN FOR BREAKTHROUGH BLEEDS UPTO 4 DOSES)
     Route: 042
  9. AMICAR [Concomitant]
     Active Substance: AMINOCAPROIC ACID
     Route: 065

REACTIONS (4)
  - Anaesthetic complication [Recovering/Resolving]
  - Limb injury [Unknown]
  - Hypokinesia [Unknown]
  - Pain in extremity [Recovering/Resolving]

NARRATIVE: CASE EVENT DATE: 20200801
